FAERS Safety Report 19273149 (Version 2)
Quarter: 2021Q2

REPORT INFORMATION
  Report Type: Spontaneous
  Country: US (occurrence: US)
  Receive Date: 20210519
  Receipt Date: 20210524
  Transmission Date: 20210717
  Serious: No
  Sender: FDA-Public Use
  Company Number: US-SA-2021SA163066

PATIENT
  Sex: Male

DRUGS (1)
  1. DUPIXENT [Suspect]
     Active Substance: DUPILUMAB
     Dosage: UNK

REACTIONS (5)
  - Incorrect dose administered by device [Unknown]
  - Product administered at inappropriate site [Unknown]
  - Injury associated with device [Unknown]
  - Skin discolouration [Unknown]
  - Wrong technique in device usage process [Unknown]
